FAERS Safety Report 7506246-8 (Version None)
Quarter: 2011Q2

REPORT INFORMATION
  Report Type: 
  Country: None (occurrence: None)
  Receive Date: 20110526
  Receipt Date: 20110106
  Transmission Date: 20111010
  Serious: Yes (Life-Threatening, Other)
  Sender: FDA-Public Use
  Company Number: PHHY2010US39873

PATIENT
  Sex: Female

DRUGS (7)
  1. COZAAR [Suspect]
  2. VALIUM [Concomitant]
  3. VALTURNA [Suspect]
     Dosage: 300/320 MG (HALF DOSE)
     Route: 048
  4. AVAPRO [Suspect]
  5. FUROSEMIDE [Concomitant]
  6. HYZAAR [Suspect]
  7. PREVACID [Concomitant]

REACTIONS (12)
  - FEELING ABNORMAL [None]
  - HYPERTENSION [None]
  - ABDOMINAL DISCOMFORT [None]
  - FATIGUE [None]
  - INTRACRANIAL HYPOTENSION [None]
  - PALPITATIONS [None]
  - WEIGHT INCREASED [None]
  - DIARRHOEA [None]
  - BLOOD PRESSURE FLUCTUATION [None]
  - DRUG HYPERSENSITIVITY [None]
  - HEADACHE [None]
  - DRUG INEFFECTIVE [None]
